FAERS Safety Report 7340530-6 (Version None)
Quarter: 2011Q1

REPORT INFORMATION
  Report Type: 
  Country: None (occurrence: None)
  Receive Date: 20110309
  Receipt Date: 20110303
  Transmission Date: 20110831
  Serious: Yes (Other)
  Sender: FDA-Public Use
  Company Number: CA-PFIZER INC-2011047046

PATIENT
  Age: 33 Year
  Sex: Female

DRUGS (2)
  1. ORTHO TRI-CYCLEN [Concomitant]
     Dosage: UNK
  2. CHAMPIX [Suspect]
     Dosage: 2 PILLS (ONE AT 10:00 AM AND ANOTHER ONE)
     Dates: start: 20110228, end: 20110228

REACTIONS (6)
  - ABNORMAL BEHAVIOUR [None]
  - DYSGRAPHIA [None]
  - TREMOR [None]
  - DYSPHEMIA [None]
  - SPEECH DISORDER [None]
  - EMOTIONAL DISTRESS [None]
